FAERS Safety Report 7747700-3 (Version None)
Quarter: 2011Q3

REPORT INFORMATION
  Report Type: 
  Country: None (occurrence: None)
  Receive Date: 20110913
  Receipt Date: 20110901
  Transmission Date: 20111222
  Serious: Yes (Hospitalization, Other)
  Sender: FDA-Public Use
  Company Number: US-ELI_LILLY_AND_COMPANY-US201109000867

PATIENT
  Sex: Male

DRUGS (2)
  1. DIGOXIN [Concomitant]
     Indication: HEART RATE
     Dosage: UNK, UNKNOWN
     Route: 065
  2. HUMATROPE [Suspect]
     Indication: BODY HEIGHT BELOW NORMAL
     Dosage: UNK, UNKNOWN
     Route: 065

REACTIONS (5)
  - HEART RATE INCREASED [None]
  - MOVEMENT DISORDER [None]
  - CONVULSION [None]
  - SOMNOLENCE [None]
  - EYE MOVEMENT DISORDER [None]
